FAERS Safety Report 19012212 (Version 1)
Quarter: 2021Q1

REPORT INFORMATION
  Report Type: Spontaneous
  Country: US (occurrence: US)
  Receive Date: 20210315
  Receipt Date: 20210315
  Transmission Date: 20210420
  Serious: Yes (Other)
  Sender: FDA-Public Use
  Company Number: NVSC2021US056100

PATIENT
  Age: 45 Year
  Sex: Female

DRUGS (4)
  1. CARBOPLATIN. [Suspect]
     Active Substance: CARBOPLATIN
     Indication: NEUROENDOCRINE CARCINOMA
  2. ETOPOSIDE. [Suspect]
     Active Substance: ETOPOSIDE
     Indication: ENDOMETRIAL CANCER RECURRENT
     Dosage: UNK, CYCLIC
     Route: 065
  3. ETOPOSIDE. [Suspect]
     Active Substance: ETOPOSIDE
     Indication: NEUROENDOCRINE CARCINOMA
  4. CARBOPLATIN. [Suspect]
     Active Substance: CARBOPLATIN
     Indication: ENDOMETRIAL CANCER
     Dosage: UNK, CYCLIC
     Route: 065

REACTIONS (4)
  - Neuroendocrine carcinoma [Unknown]
  - Malignant neoplasm progression [Unknown]
  - Endometrial cancer recurrent [Unknown]
  - Product use in unapproved indication [Unknown]
